FAERS Safety Report 23799102 (Version 1)
Quarter: 2024Q2

REPORT INFORMATION
  Report Type: Spontaneous
  Country: US (occurrence: US)
  Receive Date: 20240430
  Receipt Date: 20240430
  Transmission Date: 20240716
  Serious: Yes (Life-Threatening, Hospitalization, Other)
  Sender: FDA-Public Use
  Company Number: US-GLANDPHARMA-US-2024GLNLIT00084

PATIENT
  Age: 50 Year
  Sex: Male

DRUGS (6)
  1. HEPARIN SODIUM [Suspect]
     Active Substance: HEPARIN SODIUM
     Indication: Deep vein thrombosis
     Route: 065
  2. BASILIXIMAB [Concomitant]
     Active Substance: BASILIXIMAB
     Indication: Immunosuppressant drug therapy
     Route: 065
  3. PREDNISONE [Concomitant]
     Active Substance: PREDNISONE
     Indication: Immunosuppressant drug therapy
     Route: 065
  4. MYCOPHENOLATE MOFETIL [Concomitant]
     Active Substance: MYCOPHENOLATE MOFETIL
     Indication: Immunosuppressant drug therapy
     Route: 065
  5. OSELTAMIVIR [Concomitant]
     Active Substance: OSELTAMIVIR
     Route: 065
  6. MEROPENEM [Concomitant]
     Active Substance: MEROPENEM
     Route: 065

REACTIONS (4)
  - Haematuria [Recovered/Resolved]
  - Poor peripheral circulation [Recovered/Resolved]
  - Mental status changes [Recovered/Resolved]
  - Shock haemorrhagic [Recovered/Resolved]
